FAERS Safety Report 5058372-3 (Version None)
Quarter: 2006Q2

REPORT INFORMATION
  Report Type: 
  Country: None (occurrence: None)
  Receive Date: 20060628
  Receipt Date: 20060315
  Transmission Date: 20061013
  Serious: Yes (Other)
  Sender: FDA-Public Use
  Company Number: 440641

PATIENT
  Age: 43 Year
  Sex: Male

DRUGS (5)
  1. KLONOPIN [Suspect]
     Indication: ANXIETY
     Dosage: 2 MG DAILY ORAL
     Route: 048
  2. PAXIL [Suspect]
     Indication: DRUG USE FOR UNKNOWN INDICATION
     Dosage: ORAL
     Route: 048
  3. PAROXETINE [Suspect]
     Indication: GENERALISED ANXIETY DISORDER
     Dosage: 40 MG DAILY ORAL
     Route: 048
     Dates: start: 20050820, end: 20051002
  4. MIRTAZAPINE [Concomitant]
  5. OLANZAPINE [Concomitant]

REACTIONS (19)
  - ABDOMINAL PAIN UPPER [None]
  - AGITATION [None]
  - AMNESIA [None]
  - ANOREXIA [None]
  - ANXIETY [None]
  - CONSTIPATION [None]
  - DIARRHOEA [None]
  - DISTURBANCE IN ATTENTION [None]
  - DIZZINESS [None]
  - DYSGRAPHIA [None]
  - GASTRIC DISORDER [None]
  - INSOMNIA [None]
  - IRRITABILITY [None]
  - PAIN [None]
  - PRURITUS [None]
  - READING DISORDER [None]
  - SUICIDAL IDEATION [None]
  - TREMOR [None]
  - WEIGHT DECREASED [None]
